FAERS Safety Report 5570368-1 (Version None)
Quarter: 2007Q4

REPORT INFORMATION
  Report Type: 
  Country: None (occurrence: None)
  Receive Date: 20071219
  Receipt Date: 20071219
  Transmission Date: 20080405
  Serious: No
  Sender: FDA-Public Use
  Company Number: None

PATIENT

DRUGS (1)
  1. LOVASTATIN [Suspect]
     Indication: BLOOD CHOLESTEROL INCREASED
     Dosage: 40MG QHS PO
     Route: 048
     Dates: start: 20071212, end: 20071217

REACTIONS (2)
  - FAECAL INCONTINENCE [None]
  - PHARMACEUTICAL PRODUCT COMPLAINT [None]
